FAERS Safety Report 7290581-5 (Version None)
Quarter: 2011Q1

REPORT INFORMATION
  Report Type: 
  Country: None (occurrence: None)
  Receive Date: 20110214
  Receipt Date: 20110203
  Transmission Date: 20110831
  Serious: Yes (Other)
  Sender: FDA-Public Use
  Company Number: CA-NAPPMUNDI-CAN-2011-0001730

PATIENT
  Sex: Female

DRUGS (3)
  1. MORPHINE SULFATE [Suspect]
     Indication: PAIN
     Route: 048
  2. OXYCONTIN [Suspect]
     Indication: PAIN
     Dosage: UNK
     Route: 048
     Dates: start: 20070101
  3. METHADONE                          /00068902/ [Suspect]
     Indication: PAIN
     Route: 048

REACTIONS (4)
  - DRUG WITHDRAWAL SYNDROME [None]
  - DYSPNOEA [None]
  - INSOMNIA [None]
  - EUPHORIC MOOD [None]
